FAERS Safety Report 10301268 (Version 4)
Quarter: 2015Q1

REPORT INFORMATION
  Report Type: Report from Study
  Country: MY (occurrence: MY)
  Receive Date: 20140714
  Receipt Date: 20150106
  Transmission Date: 20150720
  Serious: Yes (Hospitalization)
  Sender: FDA-Public Use
  Company Number: MY-JNJFOC-20140405370

PATIENT
  Age: 75 Year
  Sex: Male
  Weight: 60 kg

DRUGS (28)
  1. NORVASC [Concomitant]
     Active Substance: AMLODIPINE BESYLATE
     Route: 065
     Dates: start: 20140103, end: 20140620
  2. SULPERAZONE [Concomitant]
     Active Substance: CEFOPERAZONE SODIUM\SULBACTAM SODIUM
     Route: 065
     Dates: start: 20140103, end: 20140108
  3. CONTROLOC [Concomitant]
     Active Substance: PANTOPRAZOLE SODIUM
     Route: 065
     Dates: start: 20140621, end: 20140704
  4. XARELTO [Suspect]
     Active Substance: RIVAROXABAN
     Indication: THROMBOSIS PROPHYLAXIS
     Route: 048
     Dates: start: 20140103, end: 20140401
  5. XARELTO [Suspect]
     Active Substance: RIVAROXABAN
     Indication: ATRIAL FIBRILLATION
     Route: 048
     Dates: start: 20140403
  6. XARELTO [Suspect]
     Active Substance: RIVAROXABAN
     Indication: CEREBROVASCULAR ACCIDENT PROPHYLAXIS
     Route: 048
     Dates: start: 20140103, end: 20140401
  7. ACETYLCYSTEIN [Concomitant]
     Active Substance: ACETYLCYSTEINE
     Route: 065
     Dates: start: 20140125, end: 20140330
  8. XARELTO [Suspect]
     Active Substance: RIVAROXABAN
     Indication: ATRIAL FIBRILLATION
     Route: 048
     Dates: start: 20140103, end: 20140401
  9. XARELTO [Suspect]
     Active Substance: RIVAROXABAN
     Indication: CEREBROVASCULAR ACCIDENT PROPHYLAXIS
     Route: 048
     Dates: start: 20140403
  10. CONTROLOC [Concomitant]
     Active Substance: PANTOPRAZOLE SODIUM
     Route: 065
     Dates: start: 20140706
  11. COVERSYL [Concomitant]
     Active Substance: PERINDOPRIL
     Route: 065
     Dates: start: 20140621
  12. PARACETAMOL [Concomitant]
     Active Substance: ACETAMINOPHEN
     Route: 065
     Dates: start: 20140401
  13. IRON SUPPLEMENT [Concomitant]
     Active Substance: IRON
     Route: 065
     Dates: start: 20140403, end: 20140403
  14. PANADOL [Concomitant]
     Active Substance: ACETAMINOPHEN
     Route: 065
     Dates: start: 20140424, end: 20140430
  15. IRON SUPPLEMENT [Concomitant]
     Active Substance: IRON
     Route: 065
     Dates: start: 20140517
  16. LORATADIN [Concomitant]
     Active Substance: LORATADINE
     Route: 065
     Dates: start: 20140607, end: 20140705
  17. XARELTO [Suspect]
     Active Substance: RIVAROXABAN
     Indication: THROMBOSIS PROPHYLAXIS
     Route: 048
     Dates: start: 20140403
  18. ALLOPURINOL. [Concomitant]
     Active Substance: ALLOPURINOL
     Route: 065
     Dates: start: 20140101, end: 20140330
  19. NOOTROPIL [Concomitant]
     Active Substance: PIRACETAM
     Route: 065
     Dates: start: 20131231, end: 20140108
  20. MICONAZOLE [Concomitant]
     Active Substance: MICONAZOLE
     Route: 065
     Dates: start: 20140517, end: 20140620
  21. PARACETAMOL [Concomitant]
     Active Substance: ACETAMINOPHEN
     Route: 065
     Dates: start: 20140102, end: 20140104
  22. AVELOX [Concomitant]
     Active Substance: MOXIFLOXACIN HYDROCHLORIDE
     Route: 065
     Dates: start: 20140104, end: 20140125
  23. ALLOPURINOL. [Concomitant]
     Active Substance: ALLOPURINOL
     Route: 065
     Dates: start: 20140331, end: 20140620
  24. NEXIUM [Concomitant]
     Active Substance: ESOMEPRAZOLE MAGNESIUM
     Route: 065
     Dates: start: 20140107, end: 20140330
  25. COLCHICINE. [Concomitant]
     Active Substance: COLCHICINE
     Route: 065
     Dates: start: 20140424, end: 20140430
  26. COLCHICINE. [Concomitant]
     Active Substance: COLCHICINE
     Route: 065
     Dates: start: 20140331, end: 20140404
  27. COLCHICINE. [Concomitant]
     Active Substance: COLCHICINE
     Route: 065
     Dates: start: 20140404, end: 20140412
  28. LORATADIN [Concomitant]
     Active Substance: LORATADINE
     Route: 065
     Dates: start: 20140621, end: 20140704

REACTIONS (8)
  - Pyrexia [Recovered/Resolved]
  - Oedema peripheral [Unknown]
  - Tinea infection [Recovered/Resolved]
  - Anaemia [Recovered/Resolved]
  - Gastrointestinal haemorrhage [Recovered/Resolved]
  - Gout [Recovered/Resolved]
  - Arthralgia [Recovered/Resolved]
  - Eczema [Unknown]

NARRATIVE: CASE EVENT DATE: 20140331
